FAERS Safety Report 6815396-0 (Version None)
Quarter: 2010Q3

REPORT INFORMATION
  Report Type: 
  Country: None (occurrence: None)
  Receive Date: 20100701
  Receipt Date: 20100701
  Transmission Date: 20110219
  Serious: Yes (Other)
  Sender: FDA-Public Use
  Company Number: None

PATIENT
  Sex: Female
  Weight: 64.1 kg

DRUGS (4)
  1. LYRICA [Suspect]
     Indication: LIGAMENT INJURY
     Dosage: 1 CAPSULE 2 TIMES DAY ORAL
     Route: 048
     Dates: start: 20100407, end: 20100510
  2. LYRICA [Suspect]
     Indication: LIGAMENT SPRAIN
     Dosage: 1 CAPSULE 2 TIMES DAY ORAL
     Route: 048
     Dates: start: 20100407, end: 20100510
  3. ZIAC [Concomitant]
  4. COD LIVER OIL CAPSULES [Concomitant]

REACTIONS (5)
  - EYE PAIN [None]
  - HEADACHE [None]
  - MUSCLE SPASMS [None]
  - MYALGIA [None]
  - PAIN [None]
